FAERS Safety Report 15281147 (Version 1)
Quarter: 2018Q3

REPORT INFORMATION
  Report Type: Report from Study
  Country: PL (occurrence: PL)
  Receive Date: 20180815
  Receipt Date: 20180815
  Transmission Date: 20181010
  Serious: Yes (Death, Hospitalization)
  Sender: FDA-Public Use
  Company Number: PL-TEVA-2018-PL-939911

PATIENT
  Age: 5 Year
  Sex: Female
  Weight: 14 kg

DRUGS (2)
  1. GLIVEC [Suspect]
     Active Substance: IMATINIB MESYLATE
     Indication: ACUTE LYMPHOCYTIC LEUKAEMIA
     Dosage: 300 MILLIGRAM DAILY; 300 MG
     Route: 048
     Dates: start: 20160817, end: 20160923
  2. IMATINIB MESYLATE. [Suspect]
     Active Substance: IMATINIB MESYLATE
     Indication: ACUTE LYMPHOCYTIC LEUKAEMIA
     Dosage: 200 MG, UNK
     Route: 048

REACTIONS (27)
  - Acute respiratory failure [Fatal]
  - Haemoglobin decreased [Fatal]
  - Mouth haemorrhage [Fatal]
  - Pneumonia [Fatal]
  - Red blood cell count decreased [Fatal]
  - Acute lymphocytic leukaemia [Fatal]
  - Bradycardia [Fatal]
  - Gastric haemorrhage [Fatal]
  - Oxygen saturation decreased [Fatal]
  - Adenovirus infection [Fatal]
  - Pyrexia [Fatal]
  - Pulmonary interstitial emphysema syndrome [Fatal]
  - Sepsis [Fatal]
  - Blood glucose increased [Fatal]
  - Subcutaneous emphysema [Fatal]
  - Pneumomediastinum [Fatal]
  - Thrombocytopenia [Fatal]
  - Cytomegalovirus infection [Fatal]
  - Pneumonitis [Fatal]
  - Leukopenia [Fatal]
  - Multiple organ dysfunction syndrome [Fatal]
  - Cardiac arrest [Fatal]
  - Viral infection [Fatal]
  - Hepatic enzyme abnormal [Fatal]
  - Hypovolaemia [Fatal]
  - Emphysematous cystitis [Fatal]
  - Haematuria [Fatal]

NARRATIVE: CASE EVENT DATE: 20161113
